FAERS Safety Report 7056082-4 (Version None)
Quarter: 2010Q4

REPORT INFORMATION
  Report Type: 
  Country: None (occurrence: None)
  Receive Date: 20101021
  Receipt Date: 20101018
  Transmission Date: 20110411
  Serious: Yes (Congenital Anomaly)
  Sender: FDA-Public Use
  Company Number: FR-TEVA-252130ISR

PATIENT
  Sex: Female

DRUGS (1)
  1. FLUOXETINE [Suspect]
     Route: 064

REACTIONS (3)
  - CARDIOMYOPATHY NEONATAL [None]
  - CONGENITAL HEART VALVE DISORDER [None]
  - DRUG EXPOSURE DURING PREGNANCY [None]
